FAERS Safety Report 6277864-2 (Version None)
Quarter: 2009Q3

REPORT INFORMATION
  Report Type: 
  Country: None (occurrence: None)
  Receive Date: 20090722
  Receipt Date: 20090708
  Transmission Date: 20100115
  Serious: Yes (Hospitalization, Other)
  Sender: FDA-Public Use
  Company Number: FI-ROCHE-642797

PATIENT
  Sex: Female

DRUGS (5)
  1. CAPECITABINE [Suspect]
     Indication: RECTAL CANCER
     Route: 048
     Dates: start: 20070305, end: 20070909
  2. OXALIPLATIN [Suspect]
     Indication: RECTAL CANCER
     Route: 042
     Dates: start: 20070305, end: 20070909
  3. BURANA [Concomitant]
  4. MAXALT [Concomitant]
  5. INDIVINA [Concomitant]

REACTIONS (11)
  - ANAEMIA [None]
  - CONSTIPATION [None]
  - DIARRHOEA [None]
  - FATIGUE [None]
  - FIBROSIS [None]
  - HEPATIC FAILURE [None]
  - HYDRONEPHROSIS [None]
  - NEUROPATHY PERIPHERAL [None]
  - NEUTROPENIA [None]
  - THROMBOCYTOPENIA [None]
  - VOMITING [None]
